FAERS Safety Report 9032028 (Version 5)
Quarter: 2013Q3

REPORT INFORMATION
  Report Type: Report from Study
  Country: JP (occurrence: JP)
  Receive Date: 20130125
  Receipt Date: 20130701
  Transmission Date: 20140515
  Serious: Yes (Other)
  Sender: FDA-Public Use
  Company Number: JP-NOVOPROD-369154

PATIENT
  Age: 65 Year
  Sex: Female
  Weight: 44 kg

DRUGS (3)
  1. NORDITROPIN NORDIFLEX 10 MG/ML [Suspect]
     Indication: GROWTH HORMONE DEFICIENCY
  2. DECADRON                           /00016001/ [Concomitant]
     Indication: BLOOD CORTICOTROPHIN ABNORMAL
     Dosage: 0.5 MG, QD
     Route: 048
  3. THYRADIN S [Concomitant]
     Indication: BLOOD THYROID STIMULATING HORMONE DECREASED
     Dosage: 50 UG, QD
     Route: 048

REACTIONS (1)
  - Neoplasm [Recovered/Resolved]
